FAERS Safety Report 5108310-X (Version None)
Quarter: 2006Q3

REPORT INFORMATION
  Report Type: 
  Country: None (occurrence: None)
  Receive Date: 20060914
  Receipt Date: 20060914
  Transmission Date: 20061208
  Serious: No
  Sender: FDA-Public Use
  Company Number: None

PATIENT
  Sex: Female
  Weight: 86.1834 kg

DRUGS (1)
  1. LIDOSITE TOPICAL SYSTEM KIT [Suspect]
     Indication: APPLICATION SITE ANAESTHESIA
     Dosage: 7 OUT OF 10 MINUTES CUTANEOUS
     Route: 003
     Dates: start: 20060829, end: 20060829

REACTIONS (5)
  - APPLICATION SITE BURN [None]
  - BLISTER [None]
  - IMPAIRED HEALING [None]
  - PAIN [None]
  - SCAR [None]
